FAERS Safety Report 4268698-9 (Version None)
Quarter: 2004Q1

REPORT INFORMATION
  Report Type: 
  Country: None (occurrence: None)
  Receive Date: 20040109
  Receipt Date: 20031230
  Transmission Date: 20041129
  Serious: Yes (Life-Threatening, Other)
  Sender: FDA-Public Use
  Company Number: 2003186497CA

PATIENT
  Age: 52 Year
  Sex: Female
  Weight: 63 kg

DRUGS (11)
  1. EPIRUBICIN [Suspect]
     Indication: BREAST CANCER FEMALE
     Dosage: 100 MG, D 1+8, EVERY 4 WEEKS, IV
     Route: 042
     Dates: start: 20030128, end: 20030708
  2. ADRUCIL [Suspect]
     Indication: BREAST CANCER FEMALE
     Dosage: 850 MG, D 1+8, EVERY 4 WEEKS, IV
     Route: 042
     Dates: start: 20030128, end: 20030708
  3. CYCLOPHOSPHAMIDE [Suspect]
     Indication: BREAST CANCER FEMALE
     Dosage: 125 MG, D 1 4,E VERY 4 WEEKS, ORAL
     Route: 048
     Dates: start: 20030128, end: 20030708
  4. NOVOTRIMEL DS (SULFAMETHOXAZOLE, TRIMETHOPRIM) [Suspect]
     Indication: BREAST CANCER FEMALE
     Dosage: 800 MG, D10-20, EVERY 4 WEEKS, ORAL
     Route: 048
  5. ZOFRAN [Suspect]
     Indication: NAUSEA
     Dosage: 24 MG, D1-8, EVERY 4 WEEKS, ORAL
     Route: 048
  6. DEXAMETHASONE [Suspect]
     Indication: NAUSEA
     Dosage: 10 MG, D 1+8, EVERY 4 WEEKS, IV
     Route: 042
  7. LOSEC I.V. [Concomitant]
  8. PAROXETINE HCL [Concomitant]
  9. DESMOPRESSIN (DESMOPRESSIN) [Concomitant]
  10. VITAMIN E [Concomitant]
  11. OXAZEPAM [Concomitant]

REACTIONS (5)
  - CARDIAC FAILURE [None]
  - CARDIOTOXICITY [None]
  - DYSPNOEA [None]
  - HYPOTENSION [None]
  - PULMONARY OEDEMA [None]
